FAERS Safety Report 8830355 (Version 1)
Quarter: 2012Q4

REPORT INFORMATION
  Report Type: 
  Country: US (occurrence: US)
  Receive Date: 20121009
  Receipt Date: 20121009
  Transmission Date: 20130627
  Serious: No
  Sender: FDA-Public Use
  Company Number: US-009507513-1209USA012012

PATIENT
  Age: 25 Year
  Sex: Female
  Weight: 89.25 kg

DRUGS (1)
  1. IMPLANON [Suspect]
     Indication: CONTRACEPTION
     Dosage: UNK
     Dates: start: 20120802, end: 20120918

REACTIONS (3)
  - Feeling abnormal [Unknown]
  - Unintended pregnancy [Unknown]
  - Inappropriate schedule of drug administration [Unknown]
